FAERS Safety Report 23756432 (Version 1)
Quarter: 2024Q2

REPORT INFORMATION
  Report Type: Spontaneous
  Country: US (occurrence: None)
  Receive Date: 20240417
  Receipt Date: 20240417
  Transmission Date: 20240715
  Serious: No
  Sender: FDA-Public Use
  Company Number: None

PATIENT
  Age: 43 Year
  Sex: Female
  Weight: 94.95 kg

DRUGS (11)
  1. KESIMPTA [Suspect]
     Active Substance: OFATUMUMAB
     Indication: Multiple sclerosis
     Dosage: 120 MG EVERY 28 DAYS SUBCUTANEOUS?
     Route: 058
     Dates: start: 20240319
  2. AMLODIPINE [Concomitant]
     Active Substance: AMLODIPINE BESYLATE
  3. BACLOFEN [Concomitant]
     Active Substance: BACLOFEN
  4. BUSPIRONE [Concomitant]
     Active Substance: BUSPIRONE HYDROCHLORIDE
  5. HYDROXYZINE [Concomitant]
     Active Substance: HYDROXYZINE HYDROCHLORIDE
  6. LEVOTHYROXINE [Concomitant]
     Active Substance: LEVOTHYROXINE\LEVOTHYROXINE SODIUM
  7. MELATONIN [Concomitant]
     Active Substance: MELATONIN
  8. NAPROXEN [Concomitant]
     Active Substance: NAPROXEN
  9. PROCHLOPERAZINE [Concomitant]
  10. SEROQUEL [Concomitant]
     Active Substance: QUETIAPINE FUMARATE
  11. TRILEPTAL [Concomitant]
     Active Substance: OXCARBAZEPINE

REACTIONS (9)
  - Drug ineffective [None]
  - Fatigue [None]
  - Asthenia [None]
  - Decreased appetite [None]
  - Depressed mood [None]
  - Irritability [None]
  - Hot flush [None]
  - Pruritus [None]
  - Multiple sclerosis [None]

NARRATIVE: CASE EVENT DATE: 20240410
